FAERS Safety Report 6962319-X (Version None)
Quarter: 2010Q3

REPORT INFORMATION
  Report Type: 
  Country: None (occurrence: None)
  Receive Date: 20100902
  Receipt Date: 20100823
  Transmission Date: 20110219
  Serious: Yes (Hospitalization)
  Sender: FDA-Public Use
  Company Number: JP-ELI_LILLY_AND_COMPANY-JP201007006205

PATIENT
  Sex: Female

DRUGS (9)
  1. CYMBALTA [Suspect]
     Indication: DEPRESSION
     Dosage: 20 MG, DAILY (1/D)
     Route: 048
     Dates: start: 20100624, end: 20100630
  2. CYMBALTA [Suspect]
     Dosage: 40 MG, DAILY (1/D)
     Route: 048
     Dates: start: 20100701, end: 20100721
  3. LEXOTAN [Concomitant]
     Indication: DEPRESSION
     Dosage: 5 MG, 3/D
     Route: 048
     Dates: start: 20100612
  4. GASMOTIN [Concomitant]
     Indication: NAUSEA
     Dosage: 5 MG, 3/D
     Route: 048
     Dates: start: 20100612
  5. RESLIN [Concomitant]
     Indication: DEPRESSION
     Dosage: 25 MG, DAILY (1/D)
     Route: 048
     Dates: start: 20100612
  6. MIRTAZAPINE [Concomitant]
     Indication: DEPRESSION
     Dosage: 15 MG, DAILY (1/D)
     Route: 048
     Dates: start: 20100626, end: 20100630
  7. MIRTAZAPINE [Concomitant]
     Dosage: 30 MG, DAILY (1/D)
     Route: 048
     Dates: start: 20100701, end: 20100708
  8. MIRTAZAPINE [Concomitant]
     Dosage: 45 MG, DAILY (1/D)
     Route: 048
     Dates: start: 20100709
  9. SILECE [Concomitant]
     Indication: DEPRESSION
     Dosage: 2 MG, DAILY (1/D)
     Route: 048
     Dates: start: 20100612

REACTIONS (1)
  - HEPATIC FUNCTION ABNORMAL [None]
